FAERS Safety Report 21300565 (Version 2)
Quarter: 2022Q4

REPORT INFORMATION
  Report Type: Report from Study
  Country: FR (occurrence: FR)
  Receive Date: 20220907
  Receipt Date: 20221115
  Transmission Date: 20230113
  Serious: Yes (Hospitalization, Other)
  Sender: FDA-Public Use
  Company Number: FR-TAKEDA-2022TUS061886

PATIENT
  Age: 83 Year
  Sex: Male

DRUGS (19)
  1. ICATIBANT [Suspect]
     Active Substance: ICATIBANT ACETATE
     Indication: Hereditary angioedema
     Dosage: 30 MILLIGRAM
     Route: 050
     Dates: start: 20210213
  2. ICATIBANT [Suspect]
     Active Substance: ICATIBANT ACETATE
     Indication: Hereditary angioedema
     Dosage: 30 MILLIGRAM
     Route: 050
     Dates: start: 20210213
  3. NOVORAPID [Concomitant]
     Active Substance: INSULIN ASPART
     Indication: Diabetes mellitus
     Dosage: 12 INTERNATIONAL UNIT, TID
     Route: 042
  4. ENALAPRIL\HYDROCHLOROTHIAZIDE [Concomitant]
     Active Substance: ENALAPRIL\HYDROCHLOROTHIAZIDE
     Indication: Cardiac disorder
     Dosage: 20 MILLIGRAM, QD
     Route: 048
     Dates: end: 20210213
  5. CRESTOR [Concomitant]
     Active Substance: ROSUVASTATIN CALCIUM
     Indication: Hypertension
     Dosage: 20 MILLIGRAM, QD
     Route: 048
  6. FUROSEMIDE [Concomitant]
     Active Substance: FUROSEMIDE
     Indication: Cardiac disorder
     Dosage: 20 MILLIGRAM, QD
     Route: 048
  7. BENZALKONIUM CHLORIDE\BENZYL ALCOHOL\CHLORHEXIDINE [Concomitant]
     Active Substance: BENZALKONIUM CHLORIDE\BENZYL ALCOHOL\CHLORHEXIDINE
     Indication: Diabetes mellitus
     Dosage: 1 DOSAGE FORM, BID
     Route: 062
  8. EFFERALGAN [Concomitant]
     Active Substance: ACETAMINOPHEN
     Indication: Pain management
     Dosage: 1000 MILLIGRAM, QD
     Route: 048
  9. KARDEGIC [Concomitant]
     Active Substance: ASPIRIN DL-LYSINE
     Indication: Cardiac disorder
     Dosage: 75 MILLIGRAM, QD
     Route: 048
  10. AMLODIPINE [Concomitant]
     Active Substance: AMLODIPINE BESYLATE
     Indication: Cardiac disorder
     Dosage: 10 MILLIGRAM, QD
     Route: 048
  11. TOUJEO [Concomitant]
     Active Substance: INSULIN GLARGINE
     Indication: Diabetes mellitus
     Dosage: 28 INTERNATIONAL UNIT, QD
     Route: 058
  12. URAPIDIL [Concomitant]
     Active Substance: URAPIDIL
     Indication: Hypertension
     Dosage: 30 MILLIGRAM, QD
     Route: 048
  13. ALLOPURINOL [Concomitant]
     Active Substance: ALLOPURINOL
     Indication: Renal disorder
     Dosage: 200 MILLIGRAM, QD
     Route: 048
  14. SYMBICORT [Concomitant]
     Active Substance: BUDESONIDE\FORMOTEROL FUMARATE DIHYDRATE
     Indication: Chronic obstructive pulmonary disease
     Dosage: 200 MICROGRAM, BID
     Route: 050
  15. PREGABALIN [Concomitant]
     Active Substance: PREGABALIN
     Indication: Cardiac disorder
     Dosage: 75 MILLIGRAM, QD
     Route: 048
  16. BISOPROLOL [Concomitant]
     Active Substance: BISOPROLOL
     Indication: Hypertension
     Dosage: 1.25 MILLIGRAM, BID
     Route: 048
  17. ESIDREX [Concomitant]
     Active Substance: HYDROCHLOROTHIAZIDE
     Indication: Cardiac disorder
     Dosage: 12.5 MILLIGRAM, QD
     Route: 048
     Dates: start: 20210214
  18. ASPIRIN\CLOPIDOGREL [Concomitant]
     Active Substance: ASPIRIN\CLOPIDOGREL
     Indication: Cardiac disorder
     Dosage: 75 MILLIGRAM, QD
     Route: 048
     Dates: start: 20210309
  19. PANTOPRAZOLE SODIUM [Concomitant]
     Active Substance: PANTOPRAZOLE SODIUM
     Indication: Gastrooesophageal reflux disease
     Dosage: 20 MILLIGRAM, QD
     Route: 048
     Dates: start: 20210309

REACTIONS (1)
  - Cardiac failure [Recovered/Resolved]

NARRATIVE: CASE EVENT DATE: 20210308
